FAERS Safety Report 9325540 (Version 3)
Quarter: 2017Q3

REPORT INFORMATION
  Report Type: Spontaneous
  Country: GR (occurrence: GR)
  Receive Date: 20130604
  Receipt Date: 20170926
  Transmission Date: 20171128
  Serious: Yes (Hospitalization, Other)
  Sender: FDA-Public Use
  Company Number: PHHY2013GR054731

PATIENT
  Age: 35 Year
  Sex: Female

DRUGS (3)
  1. XELODA [Concomitant]
     Active Substance: CAPECITABINE
     Indication: METASTASES TO BONE
     Dosage: 150 MG, DAILY
     Route: 048
     Dates: start: 200607
  2. TYKERB [Concomitant]
     Active Substance: LAPATINIB DITOSYLATE
     Indication: METASTASES TO BONE
     Dosage: 5 DF (250 MG), DAILY
     Route: 048
  3. ZOMETA [Suspect]
     Active Substance: ZOLEDRONIC ACID
     Indication: METASTASES TO BONE
     Dosage: 4 MG, 15 MIN EVERY 3 WEEKS
     Route: 042
     Dates: start: 200607

REACTIONS (7)
  - Osteonecrosis of jaw [Recovered/Resolved]
  - Periodontitis [Unknown]
  - Oedema [Unknown]
  - Pain [Unknown]
  - Infection [Unknown]
  - Mouth ulceration [Unknown]
  - Exposed bone in jaw [Unknown]
